FAERS Safety Report 15195246 (Version 1)
Quarter: 2018Q3

REPORT INFORMATION
  Report Type: Spontaneous
  Country: US (occurrence: US)
  Receive Date: 20180626
  Receipt Date: 20180626
  Transmission Date: 20181010
  Serious: No
  Sender: FDA-Public Use
  Company Number: None

PATIENT
  Age: 64 Year
  Sex: Female

DRUGS (2)
  1. CAPECITABINE 500MG WEST?WARD [Suspect]
     Active Substance: CAPECITABINE
     Indication: BREAST CANCER
     Dosage: 500MG TAKE :3 TABLETS ;(1500MG) BY MOUTH
     Route: 048
     Dates: start: 20180129
  2. CAPECITABINE 500MG WEST?WARD [Suspect]
     Active Substance: CAPECITABINE
     Indication: LYMPHOMA
     Dosage: 500MG TAKE :3 TABLETS ;(1500MG) BY MOUTH
     Route: 048
     Dates: start: 20180129

REACTIONS (2)
  - Palmar-plantar erythrodysaesthesia syndrome [None]
  - Dysgeusia [None]

NARRATIVE: CASE EVENT DATE: 20180622
